FAERS Safety Report 20331534 (Version 1)
Quarter: 2022Q1

REPORT INFORMATION
  Report Type: Spontaneous
  Country: US (occurrence: US)
  Receive Date: 20220113
  Receipt Date: 20220113
  Transmission Date: 20220423
  Serious: No
  Sender: FDA-Public Use
  Company Number: US-APOTEX-2021AP046310

PATIENT
  Age: 40 Year
  Sex: Female

DRUGS (11)
  1. ONDANSETRON [Suspect]
     Active Substance: ONDANSETRON
     Indication: Skin test
     Dosage: UNK
     Route: 023
  2. CEFAZOLIN [Concomitant]
     Active Substance: CEFAZOLIN
     Indication: Skin test
     Dosage: UNK
     Route: 023
  3. CEFAZOLIN [Concomitant]
     Active Substance: CEFAZOLIN
     Indication: Intraoperative care
     Dosage: UNK
     Route: 065
  4. DEXAMETHASONE [Concomitant]
     Active Substance: DEXAMETHASONE
     Indication: Skin test
     Dosage: UNK
     Route: 023
  5. DEXAMETHASONE [Concomitant]
     Active Substance: DEXAMETHASONE
     Indication: Intraoperative care
     Dosage: UNK
     Route: 065
  6. FENTANYL [Concomitant]
     Active Substance: FENTANYL
     Indication: Skin test
     Dosage: UNK
     Route: 023
  7. FENTANYL [Concomitant]
     Active Substance: FENTANYL
     Indication: Intraoperative care
     Dosage: UNK
     Route: 065
  8. METOCLOPRAMIDE [Concomitant]
     Active Substance: METOCLOPRAMIDE
     Indication: Skin test
     Dosage: UNK
     Route: 023
  9. METOCLOPRAMIDE [Concomitant]
     Active Substance: METOCLOPRAMIDE
     Indication: Intraoperative care
     Dosage: UNK
     Route: 065
  10. PROPOFOL [Concomitant]
     Active Substance: PROPOFOL
     Indication: Skin test
     Dosage: UNK
     Route: 023
  11. PROPOFOL [Concomitant]
     Active Substance: PROPOFOL
     Indication: Intraoperative care
     Dosage: UNK
     Route: 065

REACTIONS (3)
  - Skin test [Unknown]
  - Skin test positive [Unknown]
  - Hypersensitivity [Unknown]
